FAERS Safety Report 17165649 (Version 1)
Quarter: 2019Q4

REPORT INFORMATION
  Report Type: Spontaneous
  Country: US (occurrence: US)
  Receive Date: 20191217
  Receipt Date: 20191217
  Transmission Date: 20200122
  Serious: Yes (Other)
  Sender: FDA-Public Use
  Company Number: US-AMGEN-USASP2019207622

PATIENT
  Age: 74 Year
  Sex: Male

DRUGS (2)
  1. REPATHA [Suspect]
     Active Substance: EVOLOCUMAB
     Indication: HYPERCHOLESTEROLAEMIA
     Dosage: 140 MILLIGRAM, Q2WK
     Route: 065
     Dates: start: 20191105
  2. REPATHA [Suspect]
     Active Substance: EVOLOCUMAB
     Indication: BLOOD CHOLESTEROL INCREASED

REACTIONS (6)
  - Memory impairment [Unknown]
  - Back pain [Recovering/Resolving]
  - Rhinorrhoea [Unknown]
  - Blood glucose increased [Recovering/Resolving]
  - Atrial fibrillation [Recovered/Resolved]
  - Swelling [Recovering/Resolving]

NARRATIVE: CASE EVENT DATE: 2019
